FAERS Safety Report 10073664 (Version 1)
Quarter: 2014Q2

REPORT INFORMATION
  Report Type: Spontaneous
  Country: US (occurrence: US)
  Receive Date: 20140411
  Receipt Date: 20140411
  Transmission Date: 20141212
  Serious: No
  Sender: FDA-Public Use
  Company Number: US-PFIZER INC-2014102042

PATIENT
  Age: 70 Year
  Sex: Male
  Weight: 95.26 kg

DRUGS (8)
  1. EPIPEN [Suspect]
     Indication: ANAPHYLACTIC REACTION
     Route: 030
     Dates: start: 201301
  2. SOLU-MEDROL [Suspect]
     Indication: ANAPHYLACTIC REACTION
     Route: 042
     Dates: start: 20140319, end: 20140319
  3. PREDNISONE [Suspect]
     Indication: ANAPHYLACTIC REACTION
     Route: 048
     Dates: start: 20140319, end: 201403
  4. LANTUS [Concomitant]
     Indication: DIABETES MELLITUS
     Route: 058
  5. NOVOLOG [Concomitant]
     Indication: DIABETES MELLITUS
     Route: 058
  6. KEPPRA [Concomitant]
     Route: 048
  7. METFORMIN [Concomitant]
     Indication: DIABETES MELLITUS
     Route: 048
  8. LIPITOR [Concomitant]
     Route: 048

REACTIONS (3)
  - Nervousness [Recovered/Resolved]
  - Fatigue [Recovered/Resolved]
  - Injection site pain [Recovered/Resolved]
